FAERS Safety Report 6918235-2 (Version None)
Quarter: 2010Q3

REPORT INFORMATION
  Report Type: 
  Country: None (occurrence: None)
  Receive Date: 20100811
  Receipt Date: 20100804
  Transmission Date: 20110219
  Serious: Yes (Hospitalization)
  Sender: FDA-Public Use
  Company Number: JP-SHIRE-SPV1-2010-01022

PATIENT

DRUGS (11)
  1. LANTHANUM CARBONATE [Suspect]
     Indication: HYPERPHOSPHATAEMIA
     Dosage: UNK, UNKNOWN
     Route: 048
     Dates: start: 20090420
  2. CALCIUM CARBONATE [Concomitant]
     Dosage: 1500 MG, UNKNOWN
     Route: 048
  3. CALCIUM CARBONATE [Concomitant]
     Dosage: 3000 MG, UNKNOWN
     Route: 048
  4. RENAGEL [Concomitant]
     Indication: HYPERPHOSPHATAEMIA
     Dosage: 3000 MG, UNKNOWN
     Route: 048
     Dates: end: 20090503
  5. OMEPRAL                            /00661201/ [Concomitant]
     Dosage: 20 MG, UNKNOWN
     Route: 048
  6. MUCOSOLVAN [Concomitant]
     Dosage: 3 DF, UNKNOWN
     Route: 048
  7. URSO                               /00465701/ [Concomitant]
     Dosage: 150 MG, UNKNOWN
     Route: 048
  8. RHUBARB DRY EXTRACT [Concomitant]
     Dosage: 1.5 G, UNKNOWN
     Route: 048
  9. PURSENNID                          /00142207/ [Concomitant]
     Dosage: 12 MG, UNKNOWN
     Route: 048
  10. EPOGIN [Concomitant]
     Dosage: 3000 IU, UNKNOWN
     Route: 042
  11. FESIN [Concomitant]
     Dosage: 1 DF, UNKNOWN
     Route: 042

REACTIONS (1)
  - MELAENA [None]
